FAERS Safety Report 16750579 (Version 1)
Quarter: 2019Q3

REPORT INFORMATION
  Report Type: Spontaneous
  Country: US (occurrence: US)
  Receive Date: 20190828
  Receipt Date: 20190828
  Transmission Date: 20191005
  Serious: No
  Sender: FDA-Public Use
  Company Number: US-PFIZER INC-2019369015

PATIENT
  Sex: Male

DRUGS (2)
  1. PEMBROLIZUMAB. [Suspect]
     Active Substance: PEMBROLIZUMAB
     Dosage: UNK (FOR 2 WEEKS)
  2. AXITINIB [Suspect]
     Active Substance: AXITINIB
     Dosage: UNK (FOR 2 WEEKS)

REACTIONS (1)
  - Hand-foot-and-mouth disease [Recovering/Resolving]
